FAERS Safety Report 14243259 (Version 6)
Quarter: 2018Q2

REPORT INFORMATION
  Report Type: Spontaneous
  Country: DE (occurrence: DE)
  Receive Date: 20171201
  Receipt Date: 20180402
  Transmission Date: 20180711
  Serious: Yes (Hospitalization, Other)
  Sender: FDA-Public Use
  Company Number: DE-TEVA-2017-DE-826015

PATIENT
  Age: 42 Year
  Sex: Male

DRUGS (7)
  1. GEODON [Concomitant]
     Active Substance: ZIPRASIDONE HYDROCHLORIDE\ZIPRASIDONE MESYLATE
     Dosage: 20 MILLIGRAM DAILY;
     Dates: start: 20160303, end: 20160414
  2. BEZAFIBRAT [Concomitant]
     Active Substance: BEZAFIBRATE
     Dosage: 400 MILLIGRAM DAILY;
  3. BIPERIDEN [Concomitant]
     Active Substance: BIPERIDEN
     Dosage: 2 MILLIGRAM DAILY;
     Dates: end: 20160414
  4. CLOZAPINE. [Suspect]
     Active Substance: CLOZAPINE
     Dosage: 250 MILLIGRAM DAILY;
     Route: 065
     Dates: end: 20160414
  5. PROMETHAZINE [Concomitant]
     Active Substance: PROMETHAZINE\PROMETHAZINE HYDROCHLORIDE
  6. PANTOPRAZOL ABZ [Concomitant]
     Active Substance: PANTOPRAZOLE SODIUM
     Dosage: 20 MILLIGRAM DAILY;
  7. QUETIAPIN RETARD [Concomitant]
     Active Substance: QUETIAPINE
     Dosage: 350 MILLIGRAM DAILY; VON 750MG ABDOSIERT

REACTIONS (12)
  - Leukopenia [Recovering/Resolving]
  - General physical condition abnormal [Recovering/Resolving]
  - Vomiting [Recovering/Resolving]
  - Pyrexia [Recovering/Resolving]
  - Delusion [Unknown]
  - Gastrointestinal infection [Unknown]
  - C-reactive protein increased [Unknown]
  - Pericardial effusion [Unknown]
  - Troponin increased [Recovering/Resolving]
  - Myocarditis [Recovering/Resolving]
  - Condition aggravated [Unknown]
  - Diarrhoea [Recovering/Resolving]

NARRATIVE: CASE EVENT DATE: 201604
